FAERS Safety Report 5375057-4 (Version None)
Quarter: 2007Q2

REPORT INFORMATION
  Report Type: 
  Country: None (occurrence: None)
  Receive Date: 20070629
  Receipt Date: 20070424
  Transmission Date: 20071010
  Serious: Yes (Other)
  Sender: FDA-Public Use
  Company Number: A0646615A

PATIENT

DRUGS (2)
  1. AVANDARYL [Suspect]
     Route: 048
  2. METFORMIN HCL [Concomitant]

REACTIONS (1)
  - THROMBOCYTOPENIA [None]
